FAERS Safety Report 6705862-0 (Version None)
Quarter: 2010Q2

REPORT INFORMATION
  Report Type: 
  Country: None (occurrence: None)
  Receive Date: 20100503
  Receipt Date: 20091215
  Transmission Date: 20101027
  Serious: No
  Sender: FDA-Public Use
  Company Number: US-ASTRAZENECA-2009SE32232

PATIENT
  Age: 93 Year
  Sex: Female

DRUGS (8)
  1. NEXIUM [Suspect]
     Indication: GASTROOESOPHAGEAL REFLUX DISEASE
     Route: 048
  2. NEXIUM [Suspect]
     Route: 048
  3. PROPRANOLOL [Concomitant]
  4. LOVASTATIN [Concomitant]
  5. DOXYCYCLINE [Concomitant]
  6. METHYLPREDNISOLONE [Concomitant]
  7. AZITHROMYCIN [Concomitant]
     Indication: BRONCHITIS
  8. AMBIEN [Concomitant]

REACTIONS (1)
  - BRONCHITIS [None]
